FAERS Safety Report 5642947-4 (Version None)
Quarter: 2008Q1

REPORT INFORMATION
  Report Type: 
  Country: None (occurrence: None)
  Receive Date: 20080228
  Receipt Date: 20080218
  Transmission Date: 20080703
  Serious: Yes (Life-Threatening, Hospitalization)
  Sender: FDA-Public Use
  Company Number: FR-BRISTOL-MYERS SQUIBB COMPANY-14079529

PATIENT
  Age: 20 Year
  Sex: Male

DRUGS (2)
  1. AXEPIM INJ 2 GM [Suspect]
     Route: 042
     Dates: start: 20071209, end: 20071216
  2. TAZOCILLINE [Suspect]
     Dosage: STRENGTH-4G/500MG
     Route: 042
     Dates: start: 20071201, end: 20071207

REACTIONS (1)
  - AGRANULOCYTOSIS [None]
